FAERS Safety Report 5131917-0 (Version None)
Quarter: 2006Q4

REPORT INFORMATION
  Report Type: 
  Country: None (occurrence: None)
  Receive Date: 20061016
  Receipt Date: 20061003
  Transmission Date: 20070319
  Serious: Yes (Other)
  Sender: FDA-Public Use
  Company Number: 2006121312

PATIENT
  Age: 64 Year
  Sex: Male

DRUGS (10)
  1. DIFLUCAN [Suspect]
     Indication: CANDIDIASIS
     Dates: end: 20060921
  2. CEFTRIAXONE [Concomitant]
  3. VITAMIN B12 [Concomitant]
  4. HYDROCORTISONE [Concomitant]
  5. LACTULOSE [Concomitant]
  6. PREVACID [Concomitant]
  7. FOLIC ACID [Concomitant]
  8. INSULIN (INSULIN) [Concomitant]
  9. MULTIVITAMIN [Concomitant]
  10. VANCOMYCIN [Concomitant]

REACTIONS (3)
  - HEPATOTOXICITY [None]
  - INTERNATIONAL NORMALISED RATIO INCREASED [None]
  - PLATELET COUNT DECREASED [None]
